FAERS Safety Report 11883405 (Version 1)
Quarter: 2015Q4

REPORT INFORMATION
  Report Type: Spontaneous
  Country: BR (occurrence: BR)
  Receive Date: 20151231
  Receipt Date: 20151231
  Transmission Date: 20160305
  Serious: Yes (Hospitalization, Other)
  Sender: FDA-Public Use
  Company Number: BR-WATSON-2015-19141

PATIENT
  Age: 9 Year
  Sex: Female

DRUGS (3)
  1. BETAMETHASONE SODIUM PHOSPHATE (WATSON LABORATORIES) [Suspect]
     Active Substance: BETAMETHASONE SODIUM PHOSPHATE
     Indication: PEMPHIGUS
     Dosage: 6 MG, DAILY
     Route: 065
  2. PREDNISONE (UNKNOWN) [Suspect]
     Active Substance: PREDNISONE
     Indication: PEMPHIGUS
     Dosage: 1 MG/KG, DAILY
     Route: 065
  3. PREDNISONE (UNKNOWN) [Suspect]
     Active Substance: PREDNISONE
     Dosage: 1.5 MG/KG, DAILY
     Route: 065

REACTIONS (1)
  - Trichosporon infection [Recovered/Resolved]
